FAERS Safety Report 6243865-3 (Version None)
Quarter: 2009Q2

REPORT INFORMATION
  Report Type: 
  Country: None (occurrence: None)
  Receive Date: 20090624
  Receipt Date: 20090618
  Transmission Date: 20091009
  Serious: Yes (Hospitalization)
  Sender: FDA-Public Use
  Company Number: RU-MERCK-0906RUS00007

PATIENT
  Age: 67 Year
  Sex: Male
  Weight: 95 kg

DRUGS (6)
  1. ZETIA [Suspect]
     Indication: DYSLIPIDAEMIA
     Route: 048
     Dates: start: 20090504, end: 20090608
  2. ATORVASTATIN CALCIUM [Concomitant]
     Indication: DYSLIPIDAEMIA
     Route: 048
     Dates: start: 20080101, end: 20090608
  3. ASPIRIN [Concomitant]
     Indication: CORONARY ARTERY DISEASE
     Route: 048
     Dates: start: 19840101, end: 20090608
  4. WARFARIN [Concomitant]
     Indication: ATRIAL FIBRILLATION
     Route: 048
     Dates: start: 20000504, end: 20090608
  5. ENALAPRIL MALEATE AND HYDROCHLOROTHIAZIDE [Concomitant]
     Indication: HYPERTONIA
     Route: 048
     Dates: start: 20000101, end: 20090608
  6. AMIODARONE HYDROCHLORIDE [Concomitant]
     Indication: CARDIAC FIBRILLATION
     Route: 048
     Dates: start: 20090504, end: 20090608

REACTIONS (1)
  - GASTRIC HAEMORRHAGE [None]
